FAERS Safety Report 8606505-1 (Version None)
Quarter: 2012Q3

REPORT INFORMATION
  Report Type: 
  Country: None (occurrence: None)
  Receive Date: 20120820
  Receipt Date: 20120810
  Transmission Date: 20120928
  Serious: Yes (Other)
  Sender: FDA-Public Use
  Company Number: US-BAXTER-2012BAX013529

PATIENT
  Sex: Male
  Weight: 45.5 kg

DRUGS (7)
  1. TRAMADOL HCL [Concomitant]
     Route: 048
  2. ACYCLOVIR [Concomitant]
     Route: 048
  3. AMOXICILLIN [Concomitant]
     Route: 048
  4. PERCOCET [Concomitant]
     Route: 048
  5. PRILOSEC [Concomitant]
     Route: 048
  6. VITAMIN B-12 [Concomitant]
     Route: 060
  7. GAMMAGARD LIQUID [Suspect]
     Route: 042

REACTIONS (7)
  - NECK PAIN [None]
  - AURICULAR SWELLING [None]
  - PNEUMONIA [None]
  - PAIN IN JAW [None]
  - HAEMOPTYSIS [None]
  - SINUSITIS [None]
  - CYST [None]
